FAERS Safety Report 17788783 (Version 2)
Quarter: 2020Q2

REPORT INFORMATION
  Report Type: Spontaneous
  Country: MX (occurrence: MX)
  Receive Date: 20200514
  Receipt Date: 20200519
  Transmission Date: 20200714
  Serious: Yes (Death, Other)
  Sender: FDA-Public Use
  Company Number: NVSC2020MX130773

PATIENT
  Age: 87 Year
  Sex: Female
  Weight: 47 kg

DRUGS (5)
  1. ENTRESTO [Suspect]
     Active Substance: SACUBITRIL\VALSARTAN
     Indication: CARDIAC DISORDER
     Dosage: 2 DF, QD (50 MG TABLETS AROUND AN YEAR AGO)
     Route: 048
  2. OMEPRAZOLE. [Concomitant]
     Active Substance: OMEPRAZOLE
     Indication: GASTRITIS
     Dosage: 1 DF, QD (3 YEARS AGO)
     Route: 048
  3. SOMATIN [Concomitant]
     Indication: CEREBRAL DISORDER
     Dosage: 2 DF, QD (8 YEARS AGO)
     Route: 048
  4. ENTRESTO [Suspect]
     Active Substance: SACUBITRIL\VALSARTAN
     Indication: BLOOD PRESSURE INCREASED
     Dosage: 0.5 DF, QD (100 MG TABET)
     Route: 065
  5. RANITIDINE. [Concomitant]
     Active Substance: RANITIDINE
     Indication: GASTRIC DISORDER
     Dosage: 1 DF, QD (12 YEARS AGO AND STOPPED 1 YEAR AGO)
     Route: 048

REACTIONS (8)
  - Wound [Recovered/Resolved]
  - Wrong technique in product usage process [Unknown]
  - Emphysema [Unknown]
  - Productive cough [Unknown]
  - Cardiomyopathy [Fatal]
  - Infection [Recovered/Resolved]
  - Product prescribing error [Unknown]
  - Product use in unapproved indication [Unknown]

NARRATIVE: CASE EVENT DATE: 201908
